FAERS Safety Report 21831577 (Version 1)
Quarter: 2023Q1

REPORT INFORMATION
  Report Type: Spontaneous
  Country: US (occurrence: None)
  Receive Date: 20230106
  Receipt Date: 20230106
  Transmission Date: 20230418
  Serious: Yes (Hospitalization, Other)
  Sender: FDA-Public Use
  Company Number: None

PATIENT
  Age: 38 Year
  Sex: Male
  Weight: 83.25 kg

DRUGS (1)
  1. PANTOPRAZOLE SODIUM [Suspect]
     Active Substance: PANTOPRAZOLE SODIUM
     Indication: Gastrooesophageal reflux disease
     Dosage: OTHER QUANTITY : 1 TABLET(S);?
     Route: 048
     Dates: end: 20230106

REACTIONS (7)
  - Product quality issue [None]
  - Hypoaesthesia [None]
  - Pain [None]
  - Dizziness [None]
  - Chest pain [None]
  - Aphasia [None]
  - Muscular weakness [None]

NARRATIVE: CASE EVENT DATE: 20220102
